FAERS Safety Report 8071309-8 (Version None)
Quarter: 2012Q1

REPORT INFORMATION
  Report Type: 
  Country: None (occurrence: None)
  Receive Date: 20120125
  Receipt Date: 20120118
  Transmission Date: 20120608
  Serious: Yes (Other)
  Sender: FDA-Public Use
  Company Number: NL-JNJFOC-20120108472

PATIENT
  Age: 7 Decade
  Sex: Male

DRUGS (1)
  1. LISTERINE [Suspect]
     Indication: PRODUCT USED FOR UNKNOWN INDICATION
     Dosage: THREE TIMES
     Route: 048
     Dates: start: 20111001

REACTIONS (1)
  - AGEUSIA [None]
